FAERS Safety Report 5097976-9 (Version None)
Quarter: 2006Q3

REPORT INFORMATION
  Report Type: 
  Country: None (occurrence: None)
  Receive Date: 20060905
  Receipt Date: 20060905
  Transmission Date: 20061208
  Serious: No
  Sender: FDA-Public Use
  Company Number: None

PATIENT
  Age: 5 Year
  Sex: Male
  Weight: 29.4838 kg

DRUGS (1)
  1. BICILLIN C-R [Suspect]
     Indication: TONSILLITIS
     Dosage: 1.2  MU      ONCE     IM
     Route: 030

REACTIONS (1)
  - URTICARIA [None]
